FAERS Safety Report 9932273 (Version 1)
Quarter: 2014Q1

REPORT INFORMATION
  Report Type: Spontaneous
  Country: US (occurrence: US)
  Receive Date: 20140228
  Receipt Date: 20140228
  Transmission Date: 20141002
  Serious: No
  Sender: FDA-Public Use
  Company Number: US-ABBVIE-14P-163-1189905-00

PATIENT
  Sex: Male
  Weight: 72.64 kg

DRUGS (16)
  1. ANDROGEL [Suspect]
     Indication: KLINEFELTER^S SYNDROME
     Dosage: 2- 50 MG PACKETS PER  DAY
     Dates: start: 2002
  2. GLIMEPIRIDE [Concomitant]
     Indication: DIABETES MELLITUS
  3. THEOPHYLLINE [Concomitant]
     Indication: ASTHMA
  4. NEXIUM [Concomitant]
     Indication: GASTROOESOPHAGEAL REFLUX DISEASE
  5. LUMIGAN [Concomitant]
     Indication: GLAUCOMA
  6. AMLODIPINE [Concomitant]
     Indication: HYPERTENSION
  7. TORSEMIDE [Concomitant]
     Indication: PRODUCT USED FOR UNKNOWN INDICATION
  8. LORAZEPAM [Concomitant]
     Indication: PRODUCT USED FOR UNKNOWN INDICATION
  9. MECLIZINE [Concomitant]
     Indication: DIZZINESS
  10. HYDROCODONE [Concomitant]
     Indication: PRODUCT USED FOR UNKNOWN INDICATION
  11. FLOVENT [Concomitant]
     Indication: ASTHMA
  12. LIDOCAINE CREAM [Concomitant]
     Indication: HAEMORRHOIDS
  13. LIDODERM [Concomitant]
     Indication: PRODUCT USED FOR UNKNOWN INDICATION
  14. HYDROXYZINE [Concomitant]
     Indication: PRURITUS
  15. METFORMIN [Concomitant]
     Indication: PRODUCT USED FOR UNKNOWN INDICATION
  16. ANABOLIC STEROIDS [Concomitant]
     Dates: start: 1969

REACTIONS (2)
  - Headache [Not Recovered/Not Resolved]
  - Application site rash [Not Recovered/Not Resolved]
